FAERS Safety Report 5288054-4 (Version None)
Quarter: 2007Q1

REPORT INFORMATION
  Report Type: 
  Country: None (occurrence: None)
  Receive Date: 20070116
  Receipt Date: 20061018
  Transmission Date: 20070707
  Serious: No
  Sender: FDA-Public Use
  Company Number: 2006SP003733

PATIENT
  Age: 75 Year
  Sex: Female
  Weight: 45.3597 kg

DRUGS (5)
  1. LUNESTA [Suspect]
     Indication: INSOMNIA
     Dosage: HS; ORAL
     Route: 048
     Dates: start: 20060101, end: 20060101
  2. REQUIP [Concomitant]
  3. ESTROGENS CONJUGATED [Concomitant]
  4. VITAMIN CAP [Concomitant]
  5. CLONAZEPAM [Concomitant]

REACTIONS (1)
  - PARADOXICAL DRUG REACTION [None]
